FAERS Safety Report 17319630 (Version 2)
Quarter: 2020Q2

REPORT INFORMATION
  Report Type: Spontaneous
  Country: SI (occurrence: SI)
  Receive Date: 20200125
  Receipt Date: 20200612
  Transmission Date: 20200713
  Serious: Yes (Death, Other)
  Sender: FDA-Public Use
  Company Number: SI-AXELLIA-002942

PATIENT
  Age: 79 Year
  Sex: Male

DRUGS (5)
  1. AMOXICILLIN/CLAVULANIC ACID [Concomitant]
     Active Substance: AMOXICILLIN\CLAVULANIC ACID
     Indication: ASPIRATION
     Dosage: UNK
  2. ALTEPLASE. [Concomitant]
     Active Substance: ALTEPLASE
     Indication: OBSTRUCTIVE SHOCK
     Dosage: 100 MG, UNK (MG/2 HOURS)
  3. VANCOMYCIN [Suspect]
     Active Substance: VANCOMYCIN
     Indication: ASPIRATION
     Dosage: UNK
  4. HEPARIN [Concomitant]
     Active Substance: HEPARIN SODIUM
     Indication: OBSTRUCTIVE SHOCK
  5. CILASTATIN/IMIPENEM [Suspect]
     Active Substance: CILASTATIN SODIUM\IMIPENEM
     Indication: ASPIRATION
     Dosage: UNK

REACTIONS (3)
  - Septic shock [Fatal]
  - Respiratory failure [Fatal]
  - Circulatory collapse [Fatal]
